FAERS Safety Report 7824433-6 (Version None)
Quarter: 2011Q4

REPORT INFORMATION
  Report Type: 
  Country: None (occurrence: None)
  Receive Date: 20111019
  Receipt Date: 20111010
  Transmission Date: 20120403
  Serious: Yes (Other)
  Sender: FDA-Public Use
  Company Number: FR-JNJFOC-20110506940

PATIENT
  Sex: Female
  Weight: 60 kg

DRUGS (7)
  1. VENTOLIN [Concomitant]
     Route: 065
  2. SPORANOX [Suspect]
     Indication: BRONCHOPULMONARY ASPERGILLOSIS ALLERGIC
     Route: 048
     Dates: start: 19970101
  3. CORDARONE [Concomitant]
     Indication: ARRHYTHMIA
     Route: 065
  4. ACETAMINOPHEN [Concomitant]
     Route: 065
  5. FLUTICASONE PROPIONATE/SALMETEROL [Concomitant]
     Indication: ASTHMA
     Route: 065
  6. KETOPROFEN [Concomitant]
     Route: 065
  7. AMLODIPINE BESYLATE [Concomitant]
     Indication: HYPERTENSION
     Route: 065

REACTIONS (3)
  - TOOTH DISORDER [None]
  - NAIL DISORDER [None]
  - OEDEMA PERIPHERAL [None]
